FAERS Safety Report 4788933-8 (Version None)
Quarter: 2005Q4

REPORT INFORMATION
  Report Type: 
  Country: None (occurrence: None)
  Receive Date: 20051004
  Receipt Date: 20050921
  Transmission Date: 20060501
  Serious: Yes (Death)
  Sender: FDA-Public Use
  Company Number: 2005SP002809

PATIENT
  Sex: Female

DRUGS (2)
  1. LUNESTA [Suspect]
     Indication: INSOMNIA
     Dosage: ORAL
     Route: 048
     Dates: start: 20050901, end: 20050901
  2. AMBIEN [Concomitant]

REACTIONS (3)
  - COMPLETED SUICIDE [None]
  - DYSGEUSIA [None]
  - GUN SHOT WOUND [None]
